FAERS Safety Report 12212725 (Version 6)
Quarter: 2016Q2

REPORT INFORMATION
  Report Type: Report from Study
  Country: CA (occurrence: CA)
  Receive Date: 20160328
  Receipt Date: 20160422
  Transmission Date: 20160815
  Serious: Yes (Other)
  Sender: FDA-Public Use
  Company Number: CA-ROCHE-1723708

PATIENT
  Age: 85 Year
  Sex: Male

DRUGS (8)
  1. DIPHENHYDRAMINE HCL [Concomitant]
     Active Substance: DIPHENHYDRAMINE HYDROCHLORIDE
     Indication: PREMEDICATION
     Route: 048
     Dates: start: 20160308
  2. METHYLPREDNISOLONE. [Concomitant]
     Active Substance: METHYLPREDNISOLONE
     Indication: PREMEDICATION
     Route: 042
     Dates: start: 20160308
  3. FLOMAX [Concomitant]
     Active Substance: TAMSULOSIN HYDROCHLORIDE
  4. FOSINOPRIL [Concomitant]
     Active Substance: FOSINOPRIL
  5. RITUXAN [Suspect]
     Active Substance: RITUXIMAB
     Indication: IMMUNE THROMBOCYTOPENIC PURPURA
     Dosage: FOR 4 WEEKS
     Route: 042
     Dates: start: 20160308
  6. RITUXAN [Suspect]
     Active Substance: RITUXIMAB
     Dosage: HALF OF 620 MG
     Route: 042
     Dates: start: 20160411
  7. PREDNISONE. [Concomitant]
     Active Substance: PREDNISONE
     Route: 048
  8. ACETAMINOPHEN. [Concomitant]
     Active Substance: ACETAMINOPHEN
     Indication: PREMEDICATION
     Route: 048
     Dates: start: 20160308

REACTIONS (13)
  - Loss of consciousness [Recovered/Resolved]
  - Skin reaction [Unknown]
  - Blood pressure increased [Unknown]
  - Blood pressure fluctuation [Unknown]
  - Underdose [Unknown]
  - Oxygen saturation decreased [Unknown]
  - Urinary incontinence [Unknown]
  - Body temperature decreased [Unknown]
  - Influenza [Unknown]
  - Cough [Recovered/Resolved]
  - Infusion related reaction [Unknown]
  - Hypotension [Recovered/Resolved]
  - Pulse abnormal [Unknown]

NARRATIVE: CASE EVENT DATE: 20160308
